FAERS Safety Report 9050381 (Version 2)
Quarter: 2013Q1

REPORT INFORMATION
  Report Type: Spontaneous
  Country: US (occurrence: US)
  Receive Date: 20130205
  Receipt Date: 20130212
  Transmission Date: 20140127
  Serious: No
  Sender: FDA-Public Use
  Company Number: US-009507513-1302USA001688

PATIENT
  Age: 85 None
  Sex: Female
  Weight: 54.42 kg

DRUGS (6)
  1. MIRALAX [Suspect]
     Indication: CONSTIPATION
     Dosage: 17 G, QD
     Route: 048
     Dates: start: 20121118, end: 20121216
  2. MIRALAX [Suspect]
     Indication: MEDICAL OBSERVATION
  3. HYDROCHLOROTHIAZIDE [Concomitant]
     Indication: BLOOD PRESSURE
     Dosage: UNK, UNKNOWN
  4. BENICAR [Concomitant]
     Indication: BLOOD PRESSURE
     Dosage: UNK, UNKNOWN
  5. TRAMADOL HYDROCHLORIDE [Concomitant]
     Indication: ARTHROPATHY
     Dosage: UNK, UNKNOWN
  6. TRAMADOL HYDROCHLORIDE [Concomitant]
     Indication: BACK DISORDER

REACTIONS (3)
  - Rash [Unknown]
  - Drug hypersensitivity [Recovered/Resolved]
  - Incorrect drug administration duration [Unknown]
